FAERS Safety Report 21749267 (Version 1)
Quarter: 2022Q4

REPORT INFORMATION
  Report Type: Spontaneous
  Country: US (occurrence: US)
  Receive Date: 20221219
  Receipt Date: 20221219
  Transmission Date: 20230113
  Serious: No
  Sender: FDA-Public Use
  Company Number: US-BRISTOL-MYERS SQUIBB COMPANY-2022-155022

PATIENT
  Age: 80 Year
  Sex: Male

DRUGS (1)
  1. POMALYST [Suspect]
     Active Substance: POMALIDOMIDE
     Indication: Plasma cell myeloma in remission
     Dosage: THERAPY GIVEN DAILY FOR 21 DAYS ON AND 7 DAYS OFF ?THERAPY ONGOING
     Route: 048
     Dates: start: 20221118

REACTIONS (1)
  - Limb discomfort [Unknown]

NARRATIVE: CASE EVENT DATE: 20220101
